FAERS Safety Report 25600346 (Version 1)
Quarter: 2025Q3

REPORT INFORMATION
  Report Type: Other
  Country: GB (occurrence: GB)
  Receive Date: 20250724
  Receipt Date: 20250724
  Transmission Date: 20251021
  Serious: Yes (Disabling, Other)
  Sender: MACLEODS
  Company Number: None

PATIENT

DRUGS (1)
  1. ESCITALOPRAM [Suspect]
     Active Substance: ESCITALOPRAM OXALATE
     Indication: Depression
     Dosage: 20 MG AT NIGHT
     Route: 065
     Dates: start: 20170101

REACTIONS (1)
  - Loss of libido [Recovering/Resolving]

NARRATIVE: CASE EVENT DATE: 20190101
